FAERS Safety Report 14594512 (Version 1)
Quarter: 2018Q1

REPORT INFORMATION
  Report Type: Spontaneous
  Country: CA (occurrence: CA)
  Receive Date: 20180302
  Receipt Date: 20180302
  Transmission Date: 20180509
  Serious: Yes (Disabling, Other)
  Sender: FDA-Public Use
  Company Number: CA-TEVA-2018-CA-863825

PATIENT
  Age: 57 Year
  Sex: Female
  Weight: 56.3 kg

DRUGS (6)
  1. ACT CIPROFLOXACIN [Suspect]
     Active Substance: CIPROFLOXACIN
     Indication: PYELONEPHRITIS
     Route: 048
  2. PROTRIN DF TAB [Concomitant]
  3. SYNTHROID [Concomitant]
     Active Substance: LEVOTHYROXINE SODIUM
     Indication: CYSTITIS PSEUDOMONAL
     Route: 048
  4. DOM-CIPROFLOXACIN [Suspect]
     Active Substance: CIPROFLOXACIN
     Indication: URINARY TRACT INFECTION
     Route: 048
  5. ACT CIPROFLOXACIN [Suspect]
     Active Substance: CIPROFLOXACIN
     Indication: CYSTITIS PSEUDOMONAL
  6. MACROBID [Concomitant]
     Active Substance: NITROFURANTOIN\NITROFURANTOIN MONOHYDRATE

REACTIONS (7)
  - Abdominal discomfort [Recovering/Resolving]
  - Paraesthesia [Recovering/Resolving]
  - Peripheral sensory neuropathy [Recovering/Resolving]
  - Asthenia [Recovering/Resolving]
  - Pain in extremity [Recovering/Resolving]
  - Burning sensation [Recovering/Resolving]
  - Back disorder [Recovering/Resolving]
